FAERS Safety Report 9380582 (Version 1)
Quarter: 2013Q3

REPORT INFORMATION
  Report Type: Spontaneous
  Country: US (occurrence: US)
  Receive Date: 20130702
  Receipt Date: 20130702
  Transmission Date: 20140515
  Serious: No
  Sender: FDA-Public Use
  Company Number: US-PFIZER INC-2013194020

PATIENT
  Age: 28 Year
  Sex: Female
  Weight: 63.49 kg

DRUGS (2)
  1. VENLAFAXINE HCL [Suspect]
     Indication: ANGER
     Dosage: 37.5 MG, DAILY
     Dates: start: 201304, end: 20130624
  2. VENLAFAXINE HCL [Suspect]
     Indication: OBSESSIVE-COMPULSIVE DISORDER

REACTIONS (5)
  - Drug intolerance [Unknown]
  - Impaired work ability [Unknown]
  - Insomnia [Unknown]
  - Intentional drug misuse [Unknown]
  - Off label use [Unknown]
